FAERS Safety Report 18368298 (Version 1)
Quarter: 2020Q4

REPORT INFORMATION
  Report Type: Spontaneous
  Country: US (occurrence: US)
  Receive Date: 20201009
  Receipt Date: 20201009
  Transmission Date: 20210114
  Serious: Yes (Other)
  Sender: FDA-Public Use
  Company Number: US-PURDUE-USA-2020-0169051

PATIENT
  Sex: Female

DRUGS (2)
  1. HYDROCODONE BITARTRATE (SIMILAR TO NDA 206627) [Suspect]
     Active Substance: HYDROCODONE BITARTRATE
     Indication: PRODUCT USED FOR UNKNOWN INDICATION
     Dosage: UNK UNK, Q6H
     Route: 048
     Dates: start: 20190612
  2. HYDROCODONE BITARTRATE AND ACETAMINOPHEN [Suspect]
     Active Substance: ACETAMINOPHEN\HYDROCODONE BITARTRATE
     Indication: PRODUCT USED FOR UNKNOWN INDICATION
     Dosage: UNK
     Route: 048

REACTIONS (13)
  - Thinking abnormal [Unknown]
  - Personality change [Unknown]
  - Suicidal ideation [Unknown]
  - Anger [Unknown]
  - Libido decreased [Unknown]
  - Amnesia [Unknown]
  - Premenstrual pain [Unknown]
  - Menstruation irregular [Unknown]
  - Tremor [Unknown]
  - Unevaluable event [Unknown]
  - Lethargy [Unknown]
  - Amenorrhoea [Unknown]
  - Female orgasmic disorder [Unknown]

NARRATIVE: CASE EVENT DATE: 201908
